FAERS Safety Report 18069007 (Version 3)
Quarter: 2020Q3

REPORT INFORMATION
  Report Type: Report from Study
  Country: MX (occurrence: MX)
  Receive Date: 20200725
  Receipt Date: 20200904
  Transmission Date: 20201103
  Serious: Yes (Other)
  Sender: FDA-Public Use
  Company Number: NVSC2020MX208052

PATIENT
  Age: 62 Year
  Sex: Female
  Weight: 62 kg

DRUGS (10)
  1. SALMETEROL [Concomitant]
     Active Substance: SALMETEROL
     Indication: ASTHMA
     Dosage: 1 DF (50/100), BID APPROXIMATELY 10 YEARS AGO
     Route: 055
  2. MONTELUKAST [Concomitant]
     Active Substance: MONTELUKAST SODIUM
     Indication: HYPERSENSITIVITY
     Dosage: 1 DF(10 MG), QD, APPROXIMATELY 10 YEARS AGO, AT NIGHT
     Route: 048
  3. COSENTYX [Suspect]
     Active Substance: SECUKINUMAB
     Dosage: 150 MG, QMO
     Route: 058
     Dates: start: 201912
  4. COSENTYX [Suspect]
     Active Substance: SECUKINUMAB
     Indication: PSORIATIC ARTHROPATHY
     Dosage: 150 MG, QW
     Route: 058
     Dates: start: 201912
  5. SALMETEROL [Concomitant]
     Active Substance: SALMETEROL
     Dosage: 1 DF (50/100), BID, APPROXIMATELY 10 YEARS AGO
     Route: 055
  6. FLUTICASONE. [Concomitant]
     Active Substance: FLUTICASONE
     Indication: ASTHMA
     Dosage: 1 DF(50/100 MG), QD, APPOX 10 YEARS AGO
     Route: 055
  7. LEVOTHYROXINE. [Concomitant]
     Active Substance: LEVOTHYROXINE
     Indication: HYPOTHYROIDISM
     Dosage: 1 DF(100 MG), QD, APPROXIMATELY 10 YEARS AGO
     Route: 048
  8. LEVOCETIRIZINE [Concomitant]
     Active Substance: LEVOCETIRIZINE
     Indication: HYPERSENSITIVITY
     Dosage: 1 DF(5 MG), BID, APPROXIMATELY 10 YEARS AGO
     Route: 048
  9. OMEPRAZOLE. [Concomitant]
     Active Substance: OMEPRAZOLE
     Indication: COLITIS
     Dosage: 1 DF(20 MG), QD, APPROXIMATELY 5 YEARS AGO
     Route: 048
  10. SERETIDE [Concomitant]
     Active Substance: FLUTICASONE PROPIONATE\SALMETEROL XINAFOATE
     Indication: PRODUCT USED FOR UNKNOWN INDICATION
     Dosage: UNK
     Route: 065

REACTIONS (9)
  - Acne pustular [Recovered/Resolved]
  - Oropharyngeal pain [Not Recovered/Not Resolved]
  - Respiratory disorder [Recovering/Resolving]
  - Stress [Recovering/Resolving]
  - Oropharyngeal discomfort [Not Recovered/Not Resolved]
  - Thyroid mass [Not Recovered/Not Resolved]
  - Dry throat [Recovering/Resolving]
  - Psoriasis [Recovering/Resolving]
  - Off label use [Unknown]

NARRATIVE: CASE EVENT DATE: 201912
